FAERS Safety Report 6152022-0 (Version None)
Quarter: 2009Q2

REPORT INFORMATION
  Report Type: 
  Country: None (occurrence: None)
  Receive Date: 20090410
  Receipt Date: 20090401
  Transmission Date: 20091009
  Serious: Yes (Other)
  Sender: FDA-Public Use
  Company Number: PHHY2009IT10633

PATIENT
  Sex: Female

DRUGS (1)
  1. METHERGINE [Suspect]
     Indication: HAEMORRHAGE
     Dosage: 20 DROPS DAILY
     Route: 048
     Dates: start: 20080814, end: 20080814

REACTIONS (3)
  - HYPOTENSION [None]
  - NAUSEA [None]
  - VERTIGO [None]
